FAERS Safety Report 9191550 (Version 2)
Quarter: 2014Q1

REPORT INFORMATION
  Report Type: Spontaneous
  Country: US (occurrence: US)
  Receive Date: 20130326
  Receipt Date: 20140321
  Transmission Date: 20141002
  Serious: Yes (Death, Hospitalization)
  Sender: FDA-Public Use
  Company Number: US-B.I. PHARMACEUTICALS,INC./RIDGEFIELD-2013-BI-08020BP

PATIENT
  Age: 80 Year
  Sex: Female
  Weight: 74.84 kg

DRUGS (8)
  1. QUINAPRIL [Concomitant]
     Route: 065
  2. PRADAXA [Suspect]
     Indication: ATRIAL FIBRILLATION
     Dosage: 300 MG
     Route: 065
     Dates: start: 20110307, end: 20110313
  3. GABAPENTIN [Concomitant]
     Route: 065
  4. FUROSEMIDE [Concomitant]
     Route: 065
  5. ISOSORBIDE [Concomitant]
     Route: 065
     Dates: end: 20110306
  6. PLAVIX [Concomitant]
     Route: 065
     Dates: end: 20110306
  7. ATENOLOL [Concomitant]
     Route: 065
  8. LEVOTHYROXINE [Concomitant]
     Route: 065

REACTIONS (2)
  - Haemorrhagic stroke [Fatal]
  - Dyspnoea [Unknown]
